FAERS Safety Report 13428688 (Version 2)
Quarter: 2017Q2

REPORT INFORMATION
  Report Type: Report from Study
  Country: BE (occurrence: BE)
  Receive Date: 20170411
  Receipt Date: 20170426
  Transmission Date: 20170830
  Serious: No
  Sender: FDA-Public Use
  Company Number: BE-OTSUKA-2017_008091

PATIENT
  Age: 37 Year
  Sex: Male
  Weight: 96.7 kg

DRUGS (18)
  1. BLINDED TOLVAPTAN [Suspect]
     Active Substance: TOLVAPTAN
     Dosage: PLACEBO(IN MORNING), QD
     Route: 048
     Dates: start: 20150618, end: 20150624
  2. BLINDED *PLACEBO [Suspect]
     Active Substance: INVESTIGATIONAL PRODUCT
     Dosage: PLACEBO (IN EVENING), QD
     Route: 048
     Dates: start: 20150618, end: 20150624
  3. BLINDED TOLVAPTAN [Suspect]
     Active Substance: TOLVAPTAN
     Dosage: PLACEBO (IN EVENING), QD
     Route: 048
     Dates: start: 20150618, end: 20150624
  4. BLINDED *PLACEBO [Suspect]
     Active Substance: INVESTIGATIONAL PRODUCT
     Dosage: 90 MG, QD (MORNING)
     Route: 048
     Dates: start: 20150709, end: 20150729
  5. BLINDED *PLACEBO [Suspect]
     Active Substance: INVESTIGATIONAL PRODUCT
     Indication: CONGENITAL CYSTIC KIDNEY DISEASE
     Dosage: 90 MG, QD (MORNING)
     Route: 048
     Dates: start: 20150730, end: 20160725
  6. BLINDED *PLACEBO [Suspect]
     Active Substance: INVESTIGATIONAL PRODUCT
     Dosage: PLACEBO(IN MORNING), QD
     Route: 048
     Dates: start: 20150618, end: 20150624
  7. BLINDED *PLACEBO [Suspect]
     Active Substance: INVESTIGATIONAL PRODUCT
     Dosage: UNK (IN MORNING), QD
     Route: 048
     Dates: start: 20150625, end: 20150708
  8. BLINDED TOLVAPTAN [Suspect]
     Active Substance: TOLVAPTAN
     Dosage: UNK (IN EVENING), QD
     Route: 048
     Dates: start: 20150625, end: 20150708
  9. BLINDED TOLVAPTAN [Suspect]
     Active Substance: TOLVAPTAN
     Dosage: 30 MG, QD (EVENING)
     Route: 048
     Dates: start: 20150730, end: 20160725
  10. BLINDED TOLVAPTAN [Suspect]
     Active Substance: TOLVAPTAN
     Dosage: UNK (IN MORNING), QD
     Route: 048
     Dates: start: 20150625, end: 20150708
  11. BLINDED TOLVAPTAN [Suspect]
     Active Substance: TOLVAPTAN
     Dosage: 30 MG, QD (EVENING)
     Route: 048
     Dates: start: 20150709, end: 20150729
  12. AMLOR [Concomitant]
     Active Substance: AMLODIPINE BESYLATE
     Indication: HYPERTENSION
     Dosage: 10 MG, QD
     Route: 048
     Dates: start: 20141117
  13. COVERSYL [Concomitant]
     Active Substance: PERINDOPRIL
     Indication: HYPERTENSION
     Dosage: 10 MG, QD
     Route: 048
     Dates: start: 20100920
  14. BLINDED TOLVAPTAN [Suspect]
     Active Substance: TOLVAPTAN
     Indication: CONGENITAL CYSTIC KIDNEY DISEASE
     Dosage: 90 MG, QD (MORNING)
     Route: 048
     Dates: start: 20150730, end: 20160725
  15. BLINDED *PLACEBO [Suspect]
     Active Substance: INVESTIGATIONAL PRODUCT
     Dosage: 30 MG, QD (EVENING)
     Route: 048
     Dates: start: 20150730, end: 20160725
  16. BLINDED TOLVAPTAN [Suspect]
     Active Substance: TOLVAPTAN
     Dosage: 90 MG, QD (MORNING)
     Route: 048
     Dates: start: 20150709, end: 20150729
  17. BLINDED *PLACEBO [Suspect]
     Active Substance: INVESTIGATIONAL PRODUCT
     Dosage: 30 MG, QD (EVENING)
     Route: 048
     Dates: start: 20150709, end: 20150729
  18. BLINDED *PLACEBO [Suspect]
     Active Substance: INVESTIGATIONAL PRODUCT
     Dosage: UNK (IN EVENING), QD
     Route: 048
     Dates: start: 20150625, end: 20150708

REACTIONS (2)
  - Alanine aminotransferase increased [Recovered/Resolved]
  - Aspartate aminotransferase increased [Recovered/Resolved]

NARRATIVE: CASE EVENT DATE: 20160725
